FAERS Safety Report 8599294-0 (Version None)
Quarter: 2012Q3

REPORT INFORMATION
  Report Type: 
  Country: None (occurrence: None)
  Receive Date: 20120816
  Receipt Date: 20120801
  Transmission Date: 20120928
  Serious: Yes (Hospitalization, Other)
  Sender: FDA-Public Use
  Company Number: DE-FRI-1000037730

PATIENT
  Sex: Male

DRUGS (11)
  1. MEMANTINE HCL [Suspect]
     Dosage: 20 MG
     Dates: start: 20100604, end: 20100604
  2. MEMANTINE HCL [Suspect]
  3. MEMANTINE HCL [Suspect]
  4. MEMANTINE HCL [Suspect]
     Indication: COMPLEX REGIONAL PAIN SYNDROME
     Dosage: 80 MG
     Dates: start: 20100527, end: 20100529
  5. HALDOL [Concomitant]
     Indication: HALLUCINATION
  6. MEMANTINE HCL [Suspect]
     Dosage: 100 MG
     Dates: start: 20100601, end: 20100602
  7. MEMANTINE HCL [Suspect]
     Dosage: 90 MG
     Dates: start: 20100603, end: 20100603
  8. MEMANTINE HCL [Suspect]
  9. MEMANTINE HCL [Suspect]
     Indication: NEURALGIA
     Dosage: 90 MG
     Dates: start: 20100530, end: 20100531
  10. HALDOL [Concomitant]
     Indication: MALAISE
     Dosage: 15 DROPS
  11. MEMANTINE HCL [Suspect]
     Indication: PAIN
     Dosage: 60 MG
     Dates: start: 20100526, end: 20100526

REACTIONS (7)
  - DIZZINESS [None]
  - SLEEP DISORDER [None]
  - OFF LABEL USE [None]
  - THERAPEUTIC RESPONSE UNEXPECTED [None]
  - RESTLESSNESS [None]
  - HYPERTENSION [None]
  - PRE-EXISTING CONDITION IMPROVED [None]
